FAERS Safety Report 9581904 (Version 1)
Quarter: 2013Q4

REPORT INFORMATION
  Report Type: Spontaneous
  Country: US (occurrence: US)
  Receive Date: 20131002
  Receipt Date: 20131002
  Transmission Date: 20140711
  Serious: No
  Sender: FDA-Public Use
  Company Number: US-PURDUE-USA-2012-0082300

PATIENT
  Age: 35 Year
  Sex: Female

DRUGS (2)
  1. BUTRANS [Suspect]
     Indication: PAIN
     Dosage: 5 MCG, Q1H
     Route: 062
  2. VICODIN [Concomitant]
     Indication: PAIN
     Dosage: FEW PER DAY,UNK

REACTIONS (2)
  - Nausea [Unknown]
  - Pain [Unknown]
